FAERS Safety Report 16989898 (Version 1)
Quarter: 2019Q4

REPORT INFORMATION
  Report Type: Spontaneous
  Country: US (occurrence: US)
  Receive Date: 20191104
  Receipt Date: 20191104
  Transmission Date: 20200122
  Serious: No
  Sender: FDA-Public Use
  Company Number: US-BAYER-2019-197566

PATIENT
  Age: 22 Year
  Sex: Male
  Weight: 86 kg

DRUGS (1)
  1. LOTRIMIN ANTIFUNGAL (CLOTRIMAZOLE) [Suspect]
     Active Substance: CLOTRIMAZOLE
     Indication: THERAPEUTIC SKIN CARE TOPICAL
     Dosage: UNK
     Route: 061
     Dates: start: 20191031

REACTIONS (2)
  - Penile pain [Not Recovered/Not Resolved]
  - Penile burning sensation [Not Recovered/Not Resolved]

NARRATIVE: CASE EVENT DATE: 20191031
